FAERS Safety Report 5316677-2 (Version None)
Quarter: 2007Q2

REPORT INFORMATION
  Report Type: 
  Country: None (occurrence: None)
  Receive Date: 20070504
  Receipt Date: 20070420
  Transmission Date: 20071010
  Serious: Yes (Death, Other)
  Sender: FDA-Public Use
  Company Number: JP-PURDUE-MAG_2007_0000531

PATIENT
  Age: 60 Year
  Sex: Male

DRUGS (22)
  1. OXYCODONE HCL [Suspect]
     Indication: CANCER PAIN
     Dosage: 10 MG, DAILY
     Route: 048
     Dates: start: 20050909, end: 20051222
  2. OXYCODONE HCL [Suspect]
     Dosage: 15 MG, DAILY
     Route: 048
     Dates: start: 20051223, end: 20051224
  3. OXYCODONE HCL [Suspect]
     Dosage: 10 MG, DAILY
     Route: 048
     Dates: start: 20051225, end: 20060128
  4. PREDONINE [Concomitant]
     Indication: NAUSEA
     Dosage: 10 MG, DAILY
     Route: 048
     Dates: start: 20050909, end: 20051026
  5. PREDONINE [Concomitant]
     Dosage: 60 MG, DAILY
     Route: 048
     Dates: start: 20051027, end: 20051104
  6. PREDONINE [Concomitant]
     Dosage: 50 MG, DAILY
     Route: 048
     Dates: start: 20051105, end: 20051109
  7. PREDONINE [Concomitant]
     Dosage: 40 MG, DAILY
     Route: 048
     Dates: start: 20051110, end: 20051116
  8. PREDONINE [Concomitant]
     Dosage: 30 MG, DAILY
     Route: 048
     Dates: start: 20051117, end: 20051207
  9. PREDONINE [Concomitant]
     Dosage: 25 MG, DAILY
     Route: 048
     Dates: start: 20051208, end: 20051221
  10. PREDONINE [Concomitant]
     Dosage: 20 MG, DAILY
     Route: 048
     Dates: start: 20051222, end: 20060104
  11. MUCODYNE [Concomitant]
     Indication: LUNG NEOPLASM MALIGNANT
     Dosage: 1500 MG, DAILY
     Route: 048
     Dates: start: 20050801, end: 20060128
  12. MUCOSOLVAN [Concomitant]
     Indication: LUNG NEOPLASM MALIGNANT
     Dosage: 45 MG, DAILY
     Route: 048
     Dates: start: 20050801, end: 20050128
  13. SODIUM ALGINATE [Concomitant]
     Indication: RADIATION OESOPHAGITIS
     Dosage: 120 ML, DAILY
     Route: 048
     Dates: start: 20050808, end: 20050921
  14. MAGNESIUM OXIDE [Concomitant]
     Indication: CONSTIPATION
     Dosage: 1.5 GRAM, DAILY
     Route: 048
     Dates: start: 20050819, end: 20051228
  15. MAGNESIUM OXIDE [Concomitant]
     Dosage: 3 GRAM, DAILY
     Route: 065
     Dates: start: 20051229
  16. CLARITHROMYCIN [Concomitant]
     Indication: PNEUMONIA
     Dosage: 400 MG, DAILY
     Route: 048
     Dates: start: 20050830, end: 20060128
  17. CIMETIDINE HCL [Concomitant]
     Indication: PROPHYLAXIS AGAINST GASTROINTESTINAL ULCER
     Dosage: 400 MG, DAILY
     Route: 048
     Dates: start: 20050913, end: 20060111
  18. ADONA [Concomitant]
     Indication: LUNG NEOPLASM MALIGNANT
     Dosage: 90 MG, DAILY
     Route: 048
     Dates: start: 20050913, end: 20051228
  19. TRANSAMIN [Concomitant]
     Indication: LUNG NEOPLASM MALIGNANT
     Dosage: 750 MG, DAILY
     Route: 048
     Dates: start: 20050913, end: 20051228
  20. LEVOFLOXACIN [Concomitant]
     Indication: PROPHYLAXIS
     Dosage: 400 MG, DAILY
     Route: 048
     Dates: start: 20051013, end: 20060128
  21. CODEINE PHOSPHATE [Concomitant]
     Indication: LUNG NEOPLASM MALIGNANT
     Dosage: 60 MG, DAILY
     Route: 048
     Dates: start: 20050812, end: 20060128
  22. MEDICON [Concomitant]
     Indication: LUNG NEOPLASM MALIGNANT
     Dosage: 45 MG, DAILY
     Route: 048
     Dates: start: 20050812, end: 20060128

REACTIONS (4)
  - CONSTIPATION [None]
  - MALIGNANT NEOPLASM PROGRESSION [None]
  - NAUSEA [None]
  - PNEUMONIA [None]
